FAERS Safety Report 8971273 (Version 1)
Quarter: 2012Q4

REPORT INFORMATION
  Report Type: 
  Country: US (occurrence: US)
  Receive Date: 20121218
  Receipt Date: 20121218
  Transmission Date: 20130627
  Serious: Yes (Hospitalization, Other)
  Sender: FDA-Public Use
  Company Number: US-PFIZER INC-2012313386

PATIENT
  Age: 33 Year
  Sex: Female

DRUGS (1)
  1. SULFASALAZINE [Suspect]
     Dosage: 4 mg, 1x/day

REACTIONS (6)
  - Colitis ulcerative [Recovering/Resolving]
  - Lethargy [Recovered/Resolved]
  - Pyrexia [Recovered/Resolved]
  - White blood cell count increased [Recovered/Resolved]
  - Liver function test abnormal [Recovered/Resolved]
  - Decreased appetite [Recovered/Resolved]
